FAERS Safety Report 10033023 (Version 2)
Quarter: 2014Q2

REPORT INFORMATION
  Report Type: Spontaneous
  Country: NO (occurrence: NO)
  Receive Date: 20140324
  Receipt Date: 20140505
  Transmission Date: 20141212
  Serious: No
  Sender: FDA-Public Use
  Company Number: NO-PFIZER INC-2014079863

PATIENT
  Sex: Male

DRUGS (3)
  1. XALATAN [Suspect]
     Dosage: 1 DROP IN RIGHT EYE ONCE DAILY
     Route: 047
  2. ALPHAGAN [Concomitant]
     Dosage: 1 DROP IN RIGHT EYE TWO TIMES DAILY
  3. OFTAN [Concomitant]
     Dosage: 1 DROP IN RIGHT EYE TWO TIMES DAILY

REACTIONS (2)
  - Intraocular pressure increased [Not Recovered/Not Resolved]
  - Product formulation issue [Not Recovered/Not Resolved]
